FAERS Safety Report 6734630-9 (Version None)
Quarter: 2010Q2

REPORT INFORMATION
  Report Type: 
  Country: None (occurrence: None)
  Receive Date: 20100519
  Receipt Date: 20100507
  Transmission Date: 20101027
  Serious: Yes (Hospitalization)
  Sender: FDA-Public Use
  Company Number: 011686

PATIENT
  Sex: Female
  Weight: 56.8 kg

DRUGS (5)
  1. CIMZIA [Suspect]
     Indication: CROHN'S DISEASE
     Dosage: SUBCUTANEOUS
     Route: 058
     Dates: start: 20090101
  2. KLONOPIN [Concomitant]
  3. ADDERALL 30 [Concomitant]
  4. PRILOSEC [Concomitant]
  5. CONTRACEPTIVES NOS [Concomitant]

REACTIONS (1)
  - RECTAL ABSCESS [None]
